FAERS Safety Report 14329330 (Version 1)
Quarter: 2017Q4

REPORT INFORMATION
  Report Type: Spontaneous
  Country: DE (occurrence: DE)
  Receive Date: 20171227
  Receipt Date: 20171227
  Transmission Date: 20180321
  Serious: Yes (Other)
  Sender: FDA-Public Use
  Company Number: DE-SA-2017SA258834

PATIENT
  Age: 74 Year
  Sex: Male

DRUGS (14)
  1. FALITHROM [Interacting]
     Active Substance: PHENPROCOUMON
     Route: 048
  2. CANDECOR COMP [Interacting]
     Active Substance: CANDESARTAN CILEXETIL\HYDROCHLOROTHIAZIDE
     Route: 048
  3. DONEPEZIL. [Interacting]
     Active Substance: DONEPEZIL
     Route: 048
  4. BISOPROLOL [Interacting]
     Active Substance: BISOPROLOL
     Route: 048
  5. TAMSULOSIN [Interacting]
     Active Substance: TAMSULOSIN
     Route: 048
  6. LANTUS [Suspect]
     Active Substance: INSULIN GLARGINE
     Route: 065
  7. METFORMIN [Interacting]
     Active Substance: METFORMIN HYDROCHLORIDE
     Route: 048
  8. APIDRA [Interacting]
     Active Substance: INSULIN GLULISINE
     Route: 065
  9. TOREM [Suspect]
     Active Substance: TORSEMIDE
     Route: 048
  10. ALLO [Interacting]
     Active Substance: ALLOPURINOL
     Route: 048
  11. RISPERDAL [Interacting]
     Active Substance: RISPERIDONE
     Route: 048
  12. SIMVASTATIN. [Interacting]
     Active Substance: SIMVASTATIN
     Route: 048
  13. SEROQUEL [Interacting]
     Active Substance: QUETIAPINE FUMARATE
     Route: 048
  14. LEVOMEPROMAZINE [Interacting]
     Active Substance: LEVOMEPROMAZINE
     Route: 048

REACTIONS (10)
  - Blood glucose abnormal [Unknown]
  - Drug interaction [Unknown]
  - Intestinal haemorrhage [Unknown]
  - Contusion [Unknown]
  - Hyperhidrosis [Unknown]
  - Confusional state [Unknown]
  - Adverse drug reaction [Unknown]
  - Dizziness [Unknown]
  - Renal failure [Unknown]
  - Gastric haemorrhage [Unknown]
